FAERS Safety Report 4393348-0 (Version None)
Quarter: 2004Q3

REPORT INFORMATION
  Report Type: 
  Country: None (occurrence: None)
  Receive Date: 20040709
  Receipt Date: 20040701
  Transmission Date: 20050211
  Serious: Yes (Death, Other)
  Sender: FDA-Public Use
  Company Number: PHBS2004IT08788

PATIENT
  Age: 50 Year
  Sex: Female

DRUGS (12)
  1. CYCLOSPORINE [Suspect]
     Indication: BONE MARROW TRANSPLANT
     Route: 065
  2. VINCRISTINE [Suspect]
     Indication: BONE MARROW TRANSPLANT
  3. DAUNOBLASTIN [Suspect]
     Indication: BONE MARROW TRANSPLANT
  4. ERWINASE [Suspect]
     Indication: BONE MARROW TRANSPLANT
  5. STEROIDS NOS [Suspect]
     Indication: BONE MARROW TRANSPLANT
  6. HAM [Suspect]
  7. BUSULFAN [Suspect]
     Indication: BONE MARROW TRANSPLANT
     Dosage: 16 MG/KG/D
  8. FLUDARABINE PHOSPHATE [Suspect]
     Indication: BONE MARROW TRANSPLANT
     Dosage: 120 MG/KG/D
  9. METHOTREXATE [Suspect]
     Indication: BONE MARROW TRANSPLANT
  10. CIPROFLOXACIN [Concomitant]
  11. ACYCLOVIR [Concomitant]
  12. FLUCONAZOLE [Concomitant]

REACTIONS (9)
  - ACUTE RESPIRATORY DISTRESS SYNDROME [None]
  - ARRHYTHMIA [None]
  - COAGULOPATHY [None]
  - ESCHERICHIA INFECTION [None]
  - RED BLOOD CELL SCHISTOCYTES PRESENT [None]
  - RENAL FAILURE ACUTE [None]
  - STAPHYLOCOCCAL INFECTION [None]
  - THROMBOCYTOPENIA [None]
  - THROMBOTIC THROMBOCYTOPENIC PURPURA [None]
